FAERS Safety Report 18332541 (Version 2)
Quarter: 2020Q4

REPORT INFORMATION
  Report Type: Spontaneous
  Country: DE (occurrence: DE)
  Receive Date: 20201001
  Receipt Date: 20201116
  Transmission Date: 20210113
  Serious: No
  Sender: FDA-Public Use
  Company Number: DE-BEH-2020122778

PATIENT

DRUGS (3)
  1. BERIATE [Suspect]
     Active Substance: ANTIHEMOPHILIC FACTOR HUMAN
     Dosage: UNK
     Route: 065
  2. BERIATE [Suspect]
     Active Substance: ANTIHEMOPHILIC FACTOR HUMAN
     Dosage: UNK
     Route: 065
  3. BERIATE [Suspect]
     Active Substance: ANTIHEMOPHILIC FACTOR HUMAN
     Indication: PRODUCT USED FOR UNKNOWN INDICATION
     Dosage: UNK
     Route: 065

REACTIONS (3)
  - No adverse event [Unknown]
  - Device issue [Unknown]
  - Product preparation issue [Unknown]
